FAERS Safety Report 9223642 (Version 6)
Quarter: 2014Q2

REPORT INFORMATION
  Report Type: Spontaneous
  Country: US (occurrence: US)
  Receive Date: 20130410
  Receipt Date: 20140613
  Transmission Date: 20141212
  Serious: No
  Sender: FDA-Public Use
  Company Number: US-009507513-1304USA003849

PATIENT
  Sex: Male
  Weight: 68.48 kg

DRUGS (2)
  1. PROPECIA [Suspect]
     Indication: ANDROGENETIC ALOPECIA
     Dosage: 1 MG, UNK
     Route: 048
     Dates: start: 20000714, end: 20040424
  2. PROPECIA [Suspect]
     Dosage: 1 MG, UNK
     Route: 048
     Dates: start: 2006, end: 2008

REACTIONS (6)
  - Cognitive disorder [Not Recovered/Not Resolved]
  - Sexual dysfunction [Not Recovered/Not Resolved]
  - Depression [Not Recovered/Not Resolved]
  - Herpes simplex [Unknown]
  - Asthma [Unknown]
  - Benign prostatic hyperplasia [Unknown]
